FAERS Safety Report 21434044 (Version 20)
Quarter: 2023Q4

REPORT INFORMATION
  Report Type: Report from Study
  Country: US (occurrence: US)
  Receive Date: 20221010
  Receipt Date: 20231024
  Transmission Date: 20240110
  Serious: No
  Sender: FDA-Public Use
  Company Number: US-NOVARTISTESTPH-NVSC2022US224882

PATIENT
  Age: 48 Year
  Sex: Male

DRUGS (2)
  1. KESIMPTA [Suspect]
     Active Substance: OFATUMUMAB
     Indication: Relapsing multiple sclerosis
     Dosage: 20 MG PER 0.4 ML, QMO
     Route: 058
     Dates: start: 20220616
  2. KESIMPTA [Suspect]
     Active Substance: OFATUMUMAB
     Dosage: 20 MG
     Route: 058
     Dates: start: 202308

REACTIONS (9)
  - Blepharospasm [Unknown]
  - Dizziness [Not Recovered/Not Resolved]
  - Abdominal discomfort [Unknown]
  - Fall [Unknown]
  - Vertigo [Unknown]
  - Device malfunction [Unknown]
  - Accidental exposure to product [Unknown]
  - Drug dose omission by device [Unknown]
  - Inappropriate schedule of product administration [Unknown]

NARRATIVE: CASE EVENT DATE: 20221004
